FAERS Safety Report 8609163-5 (Version None)
Quarter: 2012Q3

REPORT INFORMATION
  Report Type: 
  Country: None (occurrence: None)
  Receive Date: 20120821
  Receipt Date: 20120814
  Transmission Date: 20120928
  Serious: Yes (Congenital Anomaly)
  Sender: FDA-Public Use
  Company Number: US-FRI-1000037912

PATIENT
  Sex: Female

DRUGS (1)
  1. LEXAPRO [Suspect]
     Route: 064

REACTIONS (4)
  - ATRIAL SEPTAL DEFECT [None]
  - LUNG DISORDER [None]
  - CONGENITAL ANOMALY [None]
  - CLEFT PALATE [None]
